FAERS Safety Report 17045510 (Version 1)
Quarter: 2019Q4

REPORT INFORMATION
  Report Type: Other
  Country: US (occurrence: US)
  Receive Date: 20191118
  Receipt Date: 20191118
  Transmission Date: 20200122
  Serious: No
  Sender: FDA-Public Use
  Company Number: US-LEADIANT BIOSCIENCES INC-2019STPI000229

PATIENT

DRUGS (11)
  1. PREDNISONE. [Concomitant]
     Active Substance: PREDNISONE
  2. PEPCID AC [Concomitant]
     Active Substance: FAMOTIDINE
  3. PROGRAF [Concomitant]
     Active Substance: TACROLIMUS
  4. TACROLIMUS. [Concomitant]
     Active Substance: TACROLIMUS
  5. CYSTARAN [Suspect]
     Active Substance: CYSTEAMINE HYDROCHLORIDE
     Indication: CYSTINOSIS
     Dosage: 1 DROP, Q4H
     Route: 047
     Dates: start: 20160413
  6. CALCIUM + VIT D [Concomitant]
     Active Substance: CALCIUM\VITAMIN D
  7. VITAMIN D NOS [Concomitant]
     Active Substance: VITAMIN D NOS
  8. CELLCEPT [Concomitant]
     Active Substance: MYCOPHENOLATE MOFETIL\MYCOPHENOLATE MOFETIL HYDROCHLORIDE
  9. GLUCOSE [Concomitant]
     Active Substance: DEXTROSE
  10. ALLOPURINOL. [Concomitant]
     Active Substance: ALLOPURINOL
  11. PROCYSBI [Concomitant]
     Active Substance: CYSTEAMINE BITARTRATE

REACTIONS (2)
  - Eye irritation [Not Recovered/Not Resolved]
  - Eye pain [Not Recovered/Not Resolved]
